FAERS Safety Report 22664110 (Version 5)
Quarter: 2024Q3

REPORT INFORMATION
  Report Type: Report from Study
  Country: US (occurrence: US)
  Receive Date: 20230703
  Receipt Date: 20240714
  Transmission Date: 20241017
  Serious: Yes (Death, Hospitalization, Other)
  Sender: TAKEDA
  Company Number: US-TAKEDA-US202029625

PATIENT
  Age: 73 Year
  Sex: Male

DRUGS (4)
  1. HUMAN IMMUNOGLOBULIN G [Suspect]
     Active Substance: HUMAN IMMUNOGLOBULIN G
     Indication: Selective IgA immunodeficiency
     Dosage: UNK UNK, MONTHLY
     Route: 042
  2. HUMAN IMMUNOGLOBULIN G [Suspect]
     Active Substance: HUMAN IMMUNOGLOBULIN G
     Indication: Selective IgA immunodeficiency
     Dosage: UNK UNK, MONTHLY
     Route: 042
  3. HUMAN IMMUNOGLOBULIN G [Suspect]
     Active Substance: HUMAN IMMUNOGLOBULIN G
     Indication: Primary immunodeficiency syndrome
     Dosage: UNK
     Route: 042
  4. HUMAN IMMUNOGLOBULIN G [Suspect]
     Active Substance: HUMAN IMMUNOGLOBULIN G
     Indication: Primary immunodeficiency syndrome
     Dosage: UNK
     Route: 042

REACTIONS (25)
  - Death [Fatal]
  - Skin cancer [Unknown]
  - Pneumonia [Unknown]
  - Increased tendency to bruise [Unknown]
  - Lung disorder [Unknown]
  - Gastroenteritis viral [Recovered/Resolved]
  - Pain [Unknown]
  - Chills [Unknown]
  - Tremor [Unknown]
  - Fatigue [Unknown]
  - Obstruction [Unknown]
  - Sinus disorder [Unknown]
  - Sinusitis [Unknown]
  - Sneezing [Unknown]
  - Poor venous access [Unknown]
  - COVID-19 [Not Recovered/Not Resolved]
  - Weight decreased [Unknown]
  - Gastrointestinal disorder [Unknown]
  - Post-acute COVID-19 syndrome [Unknown]
  - Joint swelling [Unknown]
  - Weight increased [Unknown]
  - Asthma [Unknown]
  - Arthralgia [Unknown]
  - Hypersensitivity [Unknown]
  - Diarrhoea [Unknown]

NARRATIVE: CASE EVENT DATE: 20220630
